FAERS Safety Report 12246542 (Version 3)
Quarter: 2016Q2

REPORT INFORMATION
  Report Type: Spontaneous
  Country: US (occurrence: US)
  Receive Date: 20160407
  Receipt Date: 20160605
  Transmission Date: 20160815
  Serious: Yes (Other)
  Sender: FDA-Public Use
  Company Number: US-TEVA-648544USA

PATIENT
  Age: 21 Year
  Sex: Male

DRUGS (1)
  1. ZECUITY [Suspect]
     Active Substance: SUMATRIPTAN SUCCINATE
     Indication: MIGRAINE
     Route: 062
     Dates: start: 201511, end: 201512

REACTIONS (7)
  - Application site vesicles [Unknown]
  - Application site pain [Unknown]
  - Patient dissatisfaction with treatment [Not Recovered/Not Resolved]
  - Application site scar [Not Recovered/Not Resolved]
  - Application site discolouration [Not Recovered/Not Resolved]
  - Application site erythema [Recovered/Resolved]
  - Application site paraesthesia [Unknown]

NARRATIVE: CASE EVENT DATE: 201512
